FAERS Safety Report 7120801-9 (Version None)
Quarter: 2010Q4

REPORT INFORMATION
  Report Type: 
  Country: None (occurrence: None)
  Receive Date: 20101124
  Receipt Date: 20101113
  Transmission Date: 20110411
  Serious: Yes (Hospitalization)
  Sender: FDA-Public Use
  Company Number: CA-JNJFOC-20101105419

PATIENT
  Sex: Female
  Weight: 81 kg

DRUGS (4)
  1. REMICADE [Suspect]
     Indication: CROHN'S DISEASE
  2. DIURETIC [Concomitant]
  3. VITAMIN B-12 [Concomitant]
     Route: 050
  4. VITAMIN D [Concomitant]

REACTIONS (5)
  - CROHN'S DISEASE [None]
  - DEHYDRATION [None]
  - MULTIPLE SCLEROSIS [None]
  - RENAL IMPAIRMENT [None]
  - SYSTEMIC LUPUS ERYTHEMATOSUS [None]
